FAERS Safety Report 24712324 (Version 1)
Quarter: 2024Q4

REPORT INFORMATION
  Report Type: Spontaneous
  Country: US (occurrence: None)
  Receive Date: 20241207
  Receipt Date: 20241207
  Transmission Date: 20250115
  Serious: Yes (Disabling)
  Sender: Public
  Company Number: None

PATIENT
  Age: 39 Year
  Sex: Male
  Weight: 81.9 kg

DRUGS (1)
  1. FINASTERIDE [Suspect]
     Active Substance: FINASTERIDE
     Indication: Alopecia
     Dosage: FREQUENCY : DAILY;?
     Route: 048
     Dates: start: 20201215, end: 20221215

REACTIONS (4)
  - Major depression [None]
  - Loss of libido [None]
  - Erectile dysfunction [None]
  - Brain fog [None]

NARRATIVE: CASE EVENT DATE: 20201215
